FAERS Safety Report 14701394 (Version 3)
Quarter: 2018Q2

REPORT INFORMATION
  Report Type: Report from Study
  Country: US (occurrence: US)
  Receive Date: 20180330
  Receipt Date: 20180620
  Transmission Date: 20180711
  Serious: Yes (Hospitalization, Other)
  Sender: FDA-Public Use
  Company Number: US-AMGEN-USASL2018041754

PATIENT
  Age: 58 Year
  Sex: Female

DRUGS (9)
  1. ENBREL [Suspect]
     Active Substance: ETANERCEPT
     Indication: FIBROMYALGIA
  2. ZETIA [Concomitant]
     Active Substance: EZETIMIBE
     Dosage: UNK
  3. ENBREL [Suspect]
     Active Substance: ETANERCEPT
     Indication: SJOGREN^S SYNDROME
  4. ENBREL [Suspect]
     Active Substance: ETANERCEPT
     Indication: PSORIATIC ARTHROPATHY
  5. LIRAGLUTIDE [Concomitant]
     Active Substance: LIRAGLUTIDE
     Indication: DIABETES MELLITUS
     Dosage: UNK
  6. ENBREL [Suspect]
     Active Substance: ETANERCEPT
     Indication: RHEUMATOID ARTHRITIS
     Dosage: 50 MG, QWK
     Route: 065
  7. REPATHA [Suspect]
     Active Substance: EVOLOCUMAB
     Indication: HYPERCHOLESTEROLAEMIA
     Dosage: 140 MG, Q2WK
     Route: 065
     Dates: start: 20180214
  8. ATORVASTATIN [Suspect]
     Active Substance: ATORVASTATIN
     Indication: PRODUCT USED FOR UNKNOWN INDICATION
     Dosage: UNK
     Route: 065
  9. NOVOLOG [Concomitant]
     Active Substance: INSULIN ASPART
     Dosage: UNK

REACTIONS (12)
  - Muscular weakness [Unknown]
  - Confusional state [Unknown]
  - Fracture [Unknown]
  - Blood cholesterol increased [Unknown]
  - Pain in extremity [Unknown]
  - Unevaluable event [Unknown]
  - Drug dose omission [Unknown]
  - Swelling [Recovering/Resolving]
  - Fall [Unknown]
  - Contusion [Recovering/Resolving]
  - Pain [Unknown]
  - Limb injury [Unknown]

NARRATIVE: CASE EVENT DATE: 2015
